FAERS Safety Report 13590464 (Version 1)
Quarter: 2017Q2

REPORT INFORMATION
  Report Type: Spontaneous
  Country: CA (occurrence: CA)
  Receive Date: 20170530
  Receipt Date: 20170530
  Transmission Date: 20170830
  Serious: Yes (Hospitalization, Disabling, Other)
  Sender: FDA-Public Use
  Company Number: CA-GLAXOSMITHKLINE-CA2017GSK053536

PATIENT
  Age: 71 Year
  Sex: Female

DRUGS (1)
  1. VOLTAREN (DICLOFENAC DIETHYLAMMONIUM SALT) [Suspect]
     Active Substance: DICLOFENAC DIETHYLAMINE
     Indication: PAIN
     Dosage: UNK
     Route: 061
     Dates: end: 20170104

REACTIONS (6)
  - Burning sensation [Not Recovered/Not Resolved]
  - Chemical burn [Unknown]
  - Necrosis [Recovered/Resolved with Sequelae]
  - Blister [Not Recovered/Not Resolved]
  - Excessive granulation tissue [Unknown]
  - Skin necrosis [Recovered/Resolved with Sequelae]

NARRATIVE: CASE EVENT DATE: 20170105
